FAERS Safety Report 7499317-6 (Version None)
Quarter: 2011Q2

REPORT INFORMATION
  Report Type: 
  Country: None (occurrence: None)
  Receive Date: 20110524
  Receipt Date: 20110513
  Transmission Date: 20111010
  Serious: Yes (Other)
  Sender: FDA-Public Use
  Company Number: US-AMGEN-USASP2011025089

PATIENT
  Age: 46 Year
  Sex: Male

DRUGS (1)
  1. ENBREL [Suspect]
     Indication: ANKYLOSING SPONDYLITIS
     Dosage: 25 MG, 2 TIMES/WK
     Dates: start: 20060501, end: 20110401

REACTIONS (8)
  - PAIN [None]
  - PYREXIA [None]
  - BACK PAIN [None]
  - TOOTHACHE [None]
  - BONE OPERATION [None]
  - JOINT STIFFNESS [None]
  - INFLAMMATION [None]
  - JOINT SWELLING [None]
